FAERS Safety Report 21976829 (Version 1)
Quarter: 2023Q1

REPORT INFORMATION
  Report Type: Other
  Country: IT (occurrence: None)
  Receive Date: 20230210
  Receipt Date: 20230210
  Transmission Date: 20230418
  Serious: Yes (Hospitalization, Other)
  Sender: FDA-Public Use
  Company Number: IT-ROCHE-3283270

PATIENT
  Age: 75 Year
  Sex: Male

DRUGS (2)
  1. RITUXIMAB [Suspect]
     Active Substance: RITUXIMAB
     Indication: Granulomatosis with polyangiitis
     Route: 065
     Dates: end: 202112
  2. PREDNISONE [Suspect]
     Active Substance: PREDNISONE
     Indication: Granulomatosis with polyangiitis
     Route: 065

REACTIONS (4)
  - COVID-19 [Recovered/Resolved]
  - Interstitial lung disease [Recovered/Resolved]
  - COVID-19 pneumonia [Recovered/Resolved]
  - SARS-CoV-2 viraemia [Recovered/Resolved]

NARRATIVE: CASE EVENT DATE: 20220101
